FAERS Safety Report 8791834 (Version 1)
Quarter: 2012Q4

REPORT INFORMATION
  Report Type: 
  Country: BR (occurrence: BR)
  Receive Date: 20120918
  Receipt Date: 20120918
  Transmission Date: 20130627
  Serious: Yes (Other)
  Sender: FDA-Public Use
  Company Number: BR-PFIZER INC-2012224122

PATIENT
  Age: 56 Year
  Sex: Female

DRUGS (8)
  1. XALATAN [Suspect]
     Indication: GLAUCOMA
     Dosage: 1.5 ug, 2x/day
     Dates: start: 20060911
  2. AAS INFANTIL [Concomitant]
     Indication: CEREBROVASCULAR ACCIDENT
     Dosage: UNK
  3. ATENOLOL [Concomitant]
     Indication: BLOOD PRESSURE INCREASED
     Dosage: 50 mg, 2x/day
  4. NPH INSULIN [Concomitant]
     Indication: DIABETES MELLITUS
     Dosage: UNK
  5. INSULIN [Concomitant]
     Indication: DIABETES MELLITUS
     Dosage: UNK
  6. SIMVASTATIN [Concomitant]
     Indication: BLOOD CHOLESTEROL
     Dosage: 40 mg, 1x/day
  7. VASOGARD [Concomitant]
     Indication: CARDIOVASCULAR DISORDER
     Dosage: 100 mg, 2x/day
  8. LOSARTAN [Concomitant]
     Indication: CARDIAC DISORDER
     Dosage: 50 mg, 2x/day

REACTIONS (4)
  - Limb injury [Unknown]
  - Eye disorder [Unknown]
  - Glaucoma [Unknown]
  - Overdose [Unknown]
